FAERS Safety Report 8393410 (Version 6)
Quarter: 2013Q1

REPORT INFORMATION
  Report Type: Spontaneous
  Country: US (occurrence: US)
  Receive Date: 20120207
  Receipt Date: 20130313
  Transmission Date: 20140127
  Serious: Yes (Hospitalization, Congenital Anomaly, Other)
  Sender: FDA-Public Use
  Company Number: US-PFIZER INC-2012008099

PATIENT
  Sex: Female
  Weight: 3 kg

DRUGS (10)
  1. ZOLOFT [Suspect]
     Indication: HEADACHE
     Dosage: 50 MG, NIGHT
     Route: 064
     Dates: start: 20011128, end: 20020712
  2. NORTRIPTYLINE [Concomitant]
     Indication: HEADACHE
     Dosage: UNK
     Route: 064
  3. PRENATAL VITAMINS [Concomitant]
     Dosage: ONE TABLET, 1XDAY
     Route: 064
     Dates: start: 200111, end: 20020711
  4. MACROBID [Concomitant]
     Indication: PYREXIA
     Dosage: 100 MG, 2X/DAY
     Route: 064
     Dates: start: 20011225
  5. TYLENOL [Concomitant]
     Indication: PYREXIA
     Dosage: 650 MG, UNK
     Route: 064
     Dates: start: 20020207
  6. SUDAFED [Concomitant]
     Indication: PYREXIA
     Dosage: UNK
     Route: 064
     Dates: start: 20020214
  7. NYQUIL [Concomitant]
     Dosage: UNK
     Route: 064
  8. MULTIVITAMIN AND MINERAL SUPPLEMENT [Concomitant]
     Dosage: UNK
     Route: 064
  9. ORTHO TRI CYCLEN [Concomitant]
     Dosage: UNK
     Route: 064
  10. VISTARIL [Concomitant]
     Dosage: 200 MG, SINGLE
     Route: 064
     Dates: start: 20020704

REACTIONS (11)
  - Maternal exposure timing unspecified [Unknown]
  - Anal atresia [Recovering/Resolving]
  - Anal fistula [Unknown]
  - Feeding disorder neonatal [Recovering/Resolving]
  - Vaginal fistula [Unknown]
  - Ventricular septal defect [Recovering/Resolving]
  - Patent ductus arteriosus [Unknown]
  - Atrial septal defect [Recovering/Resolving]
  - Congenital anomaly [Unknown]
  - Poor weight gain neonatal [Recovering/Resolving]
  - Dermatitis contact [Unknown]
